FAERS Safety Report 7121813-1 (Version None)
Quarter: 2010Q4

REPORT INFORMATION
  Report Type: 
  Country: None (occurrence: None)
  Receive Date: 20101124
  Receipt Date: 20101116
  Transmission Date: 20110411
  Serious: Yes (Other)
  Sender: FDA-Public Use
  Company Number: US-ROCHE-722633

PATIENT
  Sex: Male
  Weight: 63.5 kg

DRUGS (4)
  1. ACCUTANE [Suspect]
     Indication: ACNE
     Route: 065
     Dates: start: 19880101, end: 19980601
  2. ACCUTANE [Suspect]
     Route: 065
     Dates: start: 20000301, end: 20000801
  3. ZYRTEC [Concomitant]
  4. CLARITIN [Concomitant]

REACTIONS (25)
  - ANAEMIA [None]
  - ANGINA PECTORIS [None]
  - ANXIETY [None]
  - ARRHYTHMIA [None]
  - ARTHRALGIA [None]
  - ARTHRITIS [None]
  - ASTHMA [None]
  - BACK PAIN [None]
  - BIPOLAR DISORDER [None]
  - COLITIS ULCERATIVE [None]
  - CROHN'S DISEASE [None]
  - DRUG ABUSE [None]
  - GASTRITIS [None]
  - GASTROINTESTINAL INJURY [None]
  - GASTROOESOPHAGEAL REFLUX DISEASE [None]
  - HEADACHE [None]
  - HEPATIC ENZYME INCREASED [None]
  - HYPERTENSION [None]
  - INTESTINAL HAEMORRHAGE [None]
  - IRRITABLE BOWEL SYNDROME [None]
  - MENTAL DISORDER [None]
  - OESOPHAGITIS [None]
  - SOMNOLENCE [None]
  - SUICIDAL IDEATION [None]
  - TENDONITIS [None]
